FAERS Safety Report 5189021-1 (Version None)
Quarter: 2006Q4

REPORT INFORMATION
  Report Type: 
  Country: None (occurrence: None)
  Receive Date: 20061215
  Receipt Date: 20061204
  Transmission Date: 20070319
  Serious: Yes (Hospitalization)
  Sender: FDA-Public Use
  Company Number: CERZ-11262

PATIENT
  Age: 45 Year
  Sex: Female
  Weight: 87 kg

DRUGS (4)
  1. CEREZYME [Suspect]
     Indication: GAUCHER'S DISEASE
     Dosage: 60 U/KG Q2WKS IV
     Route: 042
     Dates: start: 20010625
  2. CEREZYME [Suspect]
     Indication: GAUCHER'S DISEASE
     Dosage: 18 U/KG Q2WKS IV
     Route: 042
     Dates: start: 19990831, end: 20010625
  3. UNSPECIFIED INHALED STEROID [Suspect]
     Indication: BRONCHIAL HYPERREACTIVITY
  4. BENZODIAZAPINE [Suspect]
     Indication: ANXIETY

REACTIONS (31)
  - ABASIA [None]
  - ACCIDENT [None]
  - AGORAPHOBIA [None]
  - ALANINE AMINOTRANSFERASE INCREASED [None]
  - ANAESTHETIC COMPLICATION [None]
  - ANXIETY [None]
  - ANXIETY DISORDER [None]
  - ASPARTATE AMINOTRANSFERASE INCREASED [None]
  - BIOPSY LIVER ABNORMAL [None]
  - BRONCHIAL HYPERREACTIVITY [None]
  - DELUSION [None]
  - DISEASE PROGRESSION [None]
  - DYSPHAGIA [None]
  - DYSPHONIA [None]
  - FAILURE OF IMPLANT [None]
  - FALL [None]
  - GASTROOESOPHAGEAL REFLUX DISEASE [None]
  - GAUCHER'S DISEASE [None]
  - HEPATIC FIBROSIS [None]
  - HYPOXIA [None]
  - INJURY [None]
  - LARYNGEAL DISORDER [None]
  - LIVER FUNCTION TEST ABNORMAL [None]
  - MORBID THOUGHTS [None]
  - NIGHTMARE [None]
  - ORAL CANDIDIASIS [None]
  - PARANOIA [None]
  - PSYCHOTIC DISORDER [None]
  - RADICULOPATHY [None]
  - SURGICAL PROCEDURE REPEATED [None]
  - VOCAL CORD ATROPHY [None]
